FAERS Safety Report 4965094-3 (Version None)
Quarter: 2006Q1

REPORT INFORMATION
  Report Type: 
  Country: None (occurrence: None)
  Receive Date: 20060130
  Receipt Date: 20051027
  Transmission Date: 20060701
  Serious: No
  Sender: FDA-Public Use
  Company Number: COT_0056_2005

PATIENT
  Age: 39 Year
  Sex: Male
  Weight: 122.4712 kg

DRUGS (2)
  1. VENTAVIS [Suspect]
     Indication: PULMONARY HYPERTENSION
     Dosage: 5 MCG IH
     Route: 055
     Dates: start: 20050416, end: 20050417
  2. REMODULIN [Concomitant]

REACTIONS (3)
  - HAEMOPTYSIS [None]
  - MALAISE [None]
  - SYNCOPE [None]
